FAERS Safety Report 6593677-6 (Version None)
Quarter: 2010Q1

REPORT INFORMATION
  Report Type: 
  Country: None (occurrence: None)
  Receive Date: 20100222
  Receipt Date: 20091030
  Transmission Date: 20100710
  Serious: No
  Sender: FDA-Public Use
  Company Number: US-BRISTOL-MYERS SQUIBB COMPANY-14841266

PATIENT
  Sex: Female
  Weight: 62 kg

DRUGS (1)
  1. ORENCIA [Suspect]
     Dosage: DF = VIALS

REACTIONS (1)
  - ADVERSE EVENT [None]
